FAERS Safety Report 10245073 (Version 2)
Quarter: 2014Q2

REPORT INFORMATION
  Report Type: Spontaneous
  Country: US (occurrence: US)
  Receive Date: 20140618
  Receipt Date: 20140618
  Transmission Date: 20141212
  Serious: No
  Sender: FDA-Public Use
  Company Number: US-GALDERMA-US14001081

PATIENT
  Age: 60 Year
  Sex: Female

DRUGS (4)
  1. MIRVASO (BRIMONIDINE) TOPICAL GEL, 0.33% [Suspect]
     Indication: ROSACEA
     Dosage: 0.33%
     Route: 061
     Dates: start: 20140219, end: 20140324
  2. MIRVASO (BRIMONIDINE) TOPICAL GEL, 0.33% [Suspect]
     Indication: ROSACEA
     Dosage: 0.33%
     Route: 061
     Dates: start: 20140310, end: 20140323
  3. FEMHRT (NORETHINDRONE ACETATE/ETHINYL ESTRADIOL) [Concomitant]
     Indication: HORMONE REPLACEMENT THERAPY
     Dosage: 2 TABS?0.5/2.5
     Route: 048
     Dates: start: 20140101
  4. VITAMINS [Concomitant]

REACTIONS (3)
  - Vertigo [Recovered/Resolved]
  - Dizziness [Recovered/Resolved]
  - Drug ineffective [Recovered/Resolved]
